FAERS Safety Report 6857203-6 (Version None)
Quarter: 2010Q3

REPORT INFORMATION
  Report Type: 
  Country: None (occurrence: None)
  Receive Date: 20100719
  Receipt Date: 20100707
  Transmission Date: 20110219
  Serious: Yes (Other)
  Sender: FDA-Public Use
  Company Number: US-PFIZER INC-2010087674

PATIENT
  Sex: Female
  Weight: 49.887 kg

DRUGS (5)
  1. ZOLOFT [Suspect]
     Indication: DEPRESSION
     Dosage: 50MG DAILY
     Dates: start: 20100201
  2. ZOLOFT [Suspect]
     Indication: ANXIETY
     Dosage: 100MG DAILY
     Dates: end: 20100417
  3. PRISTIQ [Suspect]
     Indication: DEPRESSION
     Dosage: 50MG DAILY
     Route: 048
     Dates: start: 20100417
  4. PRISTIQ [Suspect]
     Indication: ANXIETY
  5. ATIVAN [Concomitant]
     Indication: SLEEP DISORDER
     Dosage: UNK
     Dates: start: 20100201

REACTIONS (7)
  - DIARRHOEA [None]
  - EXPIRED DRUG ADMINISTERED [None]
  - INCORRECT DOSE ADMINISTERED [None]
  - MOOD SWINGS [None]
  - NAUSEA [None]
  - SLEEP DISORDER [None]
  - WEIGHT DECREASED [None]
